FAERS Safety Report 8730223 (Version 2)
Quarter: 2012Q4

REPORT INFORMATION
  Report Type: 
  Country: US (occurrence: US)
  Receive Date: 20120817
  Receipt Date: 20120830
  Transmission Date: 20130627
  Serious: Yes (Other)
  Sender: FDA-Public Use
  Company Number: US-UCBSA-063663

PATIENT
  Age: 32 Year
  Sex: Male

DRUGS (1)
  1. CIMZIA [Suspect]
     Indication: CROHN^S DISEASE
     Dosage: 400 MG AT WEEKS 0,2,4 THEN 400 MG EVERY 4 WEEKS
     Route: 058
     Dates: start: 20120314, end: 201207

REACTIONS (2)
  - Crohn^s disease [Unknown]
  - Drug ineffective [Recovered/Resolved]
